FAERS Safety Report 12084434 (Version 7)
Quarter: 2017Q3

REPORT INFORMATION
  Report Type: Report from Study
  Country: US (occurrence: US)
  Receive Date: 20160217
  Receipt Date: 20170718
  Transmission Date: 20171127
  Serious: Yes (Life-Threatening, Hospitalization, Disabling)
  Sender: FDA-Public Use
  Company Number: US-JNJFOC-20160209930

PATIENT
  Age: 71 Year
  Sex: Female
  Weight: 115.67 kg

DRUGS (3)
  1. REMICADE [Suspect]
     Active Substance: INFLIXIMAB
     Indication: PSORIASIS
     Route: 042
     Dates: start: 20130829, end: 20140410
  2. REMICADE [Suspect]
     Active Substance: INFLIXIMAB
     Indication: PSORIASIS
     Route: 042
     Dates: start: 20140605, end: 20151121
  3. METHOTREXATE. [Suspect]
     Active Substance: METHOTREXATE
     Indication: PRODUCT USED FOR UNKNOWN INDICATION
     Route: 065

REACTIONS (14)
  - Respiratory failure [Recovered/Resolved]
  - Decubitus ulcer [Unknown]
  - Diabetic ketoacidosis [Recovered/Resolved]
  - Acute left ventricular failure [Recovered/Resolved]
  - Urinary tract infection [Unknown]
  - Urosepsis [Recovered/Resolved]
  - Vascular stent thrombosis [Recovered/Resolved]
  - Chronic left ventricular failure [Unknown]
  - Acute kidney injury [Unknown]
  - Respiratory failure [Recovered/Resolved]
  - Encephalopathy [Recovered/Resolved]
  - Sepsis [Recovered/Resolved]
  - Cellulitis [Unknown]
  - Intertrigo [Unknown]

NARRATIVE: CASE EVENT DATE: 20151101
